FAERS Safety Report 6385946-X (Version None)
Quarter: 2009Q4

REPORT INFORMATION
  Report Type: 
  Country: None (occurrence: None)
  Receive Date: 20091002
  Receipt Date: 20090126
  Transmission Date: 20100525
  Serious: No
  Sender: FDA-Public Use
  Company Number: US-ASTRAZENECA-2009UW02273

PATIENT
  Sex: Female
  Weight: 48.5 kg

DRUGS (1)
  1. ARIMIDEX [Suspect]
     Indication: BREAST CANCER
     Route: 048
     Dates: start: 20080403

REACTIONS (4)
  - HOT FLUSH [None]
  - NIGHT SWEATS [None]
  - VAGINAL DISORDER [None]
  - VULVOVAGINAL DRYNESS [None]
